FAERS Safety Report 6742729-6 (Version None)
Quarter: 2010Q2

REPORT INFORMATION
  Report Type: 
  Country: None (occurrence: None)
  Receive Date: 20100526
  Receipt Date: 20100126
  Transmission Date: 20101027
  Serious: No
  Sender: FDA-Public Use
  Company Number: US-ABBOTT-10P-163-0620832-00

PATIENT
  Sex: Female

DRUGS (8)
  1. ZEMPLAR [Suspect]
     Indication: RENAL DISORDER
     Dates: start: 20090701
  2. ZEMPLAR [Suspect]
     Indication: MUSCLE SPASMS
  3. NOVALOG [Concomitant]
     Indication: DIABETES MELLITUS
     Route: 058
  4. HUMULOG N [Concomitant]
     Indication: DIABETES MELLITUS
     Route: 058
  5. STARLIX [Concomitant]
     Indication: DIABETES MELLITUS
     Route: 048
  6. AMLODIPINE [Interacting]
     Indication: HYPERTENSION
     Dosage: UNKNOWN
  7. ASPIRIN [Concomitant]
     Indication: CARDIAC DISORDER
  8. SINGULAIR [Concomitant]
     Indication: MULTIPLE ALLERGIES
     Dosage: UNKNOWN

REACTIONS (3)
  - ABDOMINAL PAIN UPPER [None]
  - MOBILITY DECREASED [None]
  - MUSCLE SPASMS [None]
